FAERS Safety Report 6936601-6 (Version None)
Quarter: 2010Q3

REPORT INFORMATION
  Report Type: 
  Country: None (occurrence: None)
  Receive Date: 20100823
  Receipt Date: 20100809
  Transmission Date: 20110219
  Serious: Yes (Other)
  Sender: FDA-Public Use
  Company Number: PL-ROCHE-720141

PATIENT
  Sex: Female

DRUGS (2)
  1. ROACTEMRA [Suspect]
     Indication: RHEUMATOID ARTHRITIS
     Route: 065
     Dates: start: 20091020
  2. ROACTEMRA [Suspect]
     Dosage: LANNED IN AUGUST- 400 MG.
     Route: 065

REACTIONS (4)
  - ERYTHEMA [None]
  - FACE OEDEMA [None]
  - FIBRIN D DIMER INCREASED [None]
  - OROPHARYNGEAL PAIN [None]
